FAERS Safety Report 7725840-2 (Version None)
Quarter: 2011Q3

REPORT INFORMATION
  Report Type: 
  Country: None (occurrence: None)
  Receive Date: 20110830
  Receipt Date: 20110815
  Transmission Date: 20111222
  Serious: Yes (Death)
  Sender: FDA-Public Use
  Company Number: JPI-P-009816

PATIENT
  Age: 32 Year
  Sex: Female

DRUGS (9)
  1. XYREM [Suspect]
     Indication: INSOMNIA
     Dosage: 4.5 GM (2.25 GM, 2 IN 1 D), ORAL; 10 GM (5 GM, 2 IN 1 D), ORAL
     Route: 048
     Dates: start: 20100127
  2. XYREM [Suspect]
     Indication: FIBROMYALGIA
     Dosage: 4.5 GM (2.25 GM, 2 IN 1 D), ORAL; 10 GM (5 GM, 2 IN 1 D), ORAL
     Route: 048
     Dates: start: 20100127
  3. XYREM [Suspect]
     Indication: INSOMNIA
     Dosage: 4.5 GM (2.25 GM, 2 IN 1 D), ORAL; 10 GM (5 GM, 2 IN 1 D), ORAL
     Route: 048
     Dates: start: 20080729
  4. XYREM [Suspect]
     Indication: FIBROMYALGIA
     Dosage: 4.5 GM (2.25 GM, 2 IN 1 D), ORAL; 10 GM (5 GM, 2 IN 1 D), ORAL
     Route: 048
     Dates: start: 20080729
  5. NALREXONE [Concomitant]
  6. PREGABALIN [Concomitant]
  7. LEVOTHYROXINE SODIUM [Concomitant]
  8. ZOLPIDEM [Concomitant]
  9. CITALOPRAM HYDROBROMIDE [Concomitant]

REACTIONS (2)
  - OBESITY SURGERY [None]
  - POST PROCEDURAL COMPLICATION [None]
